FAERS Safety Report 9379335 (Version 1)
Quarter: 2013Q3

REPORT INFORMATION
  Report Type: Spontaneous
  Country: IT (occurrence: IT)
  Receive Date: 20130702
  Receipt Date: 20130702
  Transmission Date: 20140515
  Serious: Yes (Life-Threatening, Hospitalization)
  Sender: FDA-Public Use
  Company Number: IT-PFIZER INC-2013193520

PATIENT
  Age: 63 Year
  Sex: Male

DRUGS (3)
  1. IDARUBICIN HCL [Suspect]
     Indication: ACUTE PROMYELOCYTIC LEUKAEMIA
     Dosage: 21.96 MG, ALTERNATE DAY
     Route: 042
     Dates: start: 20130129, end: 20130202
  2. VESANOID [Suspect]
     Indication: ACUTE PROMYELOCYTIC LEUKAEMIA
     Dosage: 80 MG, DAILY
     Route: 048
     Dates: start: 20130124, end: 20130211
  3. ZEFFIX [Concomitant]

REACTIONS (2)
  - Respiratory failure [Recovering/Resolving]
  - Acute myocardial infarction [Recovering/Resolving]
